FAERS Safety Report 8858476 (Version 1)
Quarter: 2012Q4

REPORT INFORMATION
  Report Type: 
  Country: NZ (occurrence: NZ)
  Receive Date: 20121024
  Receipt Date: 20121024
  Transmission Date: 20130627
  Serious: Yes (Hospitalization)
  Sender: FDA-Public Use
  Company Number: NZ-ASTRAZENECA-2012SE79637

PATIENT
  Age: 82 Year
  Sex: Female

DRUGS (9)
  1. OMEPRAZOLE [Suspect]
     Route: 048
  2. ASPIRIN [Suspect]
  3. FELODIPINE [Suspect]
     Route: 048
  4. PARACETAMOL [Suspect]
     Dosage: As required
  5. CITALOPRAM [Suspect]
  6. COLECALCIFEROL [Suspect]
  7. CARVEDILOL [Suspect]
  8. TRIAZOLAM [Suspect]
  9. BECLOMETHASONE DIPROPIONATE [Suspect]
     Route: 045

REACTIONS (5)
  - Asthenia [Unknown]
  - Fall [Unknown]
  - Fatigue [Unknown]
  - Hypokalaemia [Unknown]
  - Hyponatraemia [Unknown]
